FAERS Safety Report 10220623 (Version 1)
Quarter: 2014Q2

REPORT INFORMATION
  Report Type: Spontaneous
  Country: US (occurrence: None)
  Receive Date: 20140605
  Receipt Date: 20140605
  Transmission Date: 20141212
  Serious: No
  Sender: FDA-Public Use
  Company Number: None

PATIENT
  Age: 22 Year
  Sex: Female
  Weight: 55.34 kg

DRUGS (1)
  1. FLUOXETINE 40 MG [Suspect]
     Indication: DEPRESSION
     Dosage: 1 CAPSULE, ONCE DAILY, TAKEN BY MOUTH
     Route: 048
     Dates: start: 20140522, end: 20140604

REACTIONS (5)
  - Chest pain [None]
  - Oesophageal pain [None]
  - Nausea [None]
  - Malaise [None]
  - Dyspepsia [None]
